FAERS Safety Report 12013369 (Version 8)
Quarter: 2016Q2

REPORT INFORMATION
  Report Type: Report from Study
  Country: US (occurrence: US)
  Receive Date: 20160205
  Receipt Date: 20160516
  Transmission Date: 20160815
  Serious: Yes (Death, Hospitalization)
  Sender: FDA-Public Use
  Company Number: US-ACTELION-A-US2016-130322

PATIENT
  Age: 63 Year
  Sex: Female

DRUGS (3)
  1. OPSUMIT [Suspect]
     Active Substance: MACITENTAN
     Indication: PULMONARY ARTERIAL HYPERTENSION
     Dosage: 10 MG, QD
     Route: 048
     Dates: start: 20150205
  2. CARDIZEM [Concomitant]
     Active Substance: DILTIAZEM HYDROCHLORIDE
  3. VELETRI [Suspect]
     Active Substance: EPOPROSTENOL
     Indication: PULMONARY ARTERIAL HYPERTENSION
     Dosage: 7 NG/KG, PER MIN
     Route: 042
     Dates: start: 20160112, end: 20160406

REACTIONS (26)
  - Blood alkaline phosphatase increased [Fatal]
  - Dyspnoea [Unknown]
  - Vomiting [Unknown]
  - Weight decreased [Unknown]
  - Acute respiratory failure [Fatal]
  - Decreased appetite [Unknown]
  - Hypoxia [Fatal]
  - Pleural effusion [Unknown]
  - Diarrhoea [Unknown]
  - Headache [Recovered/Resolved]
  - Productive cough [Fatal]
  - Catheter site haemorrhage [Unknown]
  - Hypotension [Fatal]
  - Catheter site pruritus [Recovered/Resolved]
  - Asthenia [Unknown]
  - Acute myocardial infarction [Fatal]
  - Nausea [Unknown]
  - Dermatitis contact [Unknown]
  - Malaise [Unknown]
  - Haemoglobin decreased [Unknown]
  - Nasopharyngitis [Unknown]
  - Pneumonia [Fatal]
  - Bronchitis [Recovered/Resolved]
  - Pain in jaw [Unknown]
  - Sinusitis [Unknown]
  - Lung infection [Unknown]

NARRATIVE: CASE EVENT DATE: 20160120
